FAERS Safety Report 9775417 (Version 1)
Quarter: 2013Q4

REPORT INFORMATION
  Report Type: Spontaneous
  Country: FR (occurrence: FR)
  Receive Date: 20131220
  Receipt Date: 20131220
  Transmission Date: 20140711
  Serious: Yes (Hospitalization)
  Sender: FDA-Public Use
  Company Number: FR-PFIZER INC-2013361842

PATIENT
  Age: 86 Year
  Sex: Female

DRUGS (12)
  1. NEURONTIN [Suspect]
     Indication: EPILEPSY
     Dosage: 200 MG, 2X/DAY
     Route: 048
     Dates: start: 20130817, end: 20131004
  2. SINEMET [Suspect]
     Indication: PARKINSONISM
     Dosage: 100 MG, 1X/DAY
     Route: 048
     Dates: end: 20131004
  3. RISPERDAL [Concomitant]
     Indication: MANIA
     Dosage: 0.25 ML, 2X/DAY
     Route: 048
     Dates: start: 20130817, end: 20131004
  4. TEMESTA [Concomitant]
     Indication: ANXIETY
     Dosage: 2.5 MG, 1X/DAY
     Route: 048
  5. MEBEVERINE [Concomitant]
  6. OMEPRAZOLE [Concomitant]
  7. DIAMICRON [Concomitant]
  8. SOTALOL [Concomitant]
  9. IKOREL [Concomitant]
  10. PREVISCAN [Concomitant]
  11. ECONAZOLE [Concomitant]
  12. PENTASA [Concomitant]

REACTIONS (2)
  - Confusional state [Recovering/Resolving]
  - Abnormal behaviour [Recovering/Resolving]
